FAERS Safety Report 8429374-1 (Version None)
Quarter: 2012Q2

REPORT INFORMATION
  Report Type: 
  Country: None (occurrence: None)
  Receive Date: 20120612
  Receipt Date: 20120612
  Transmission Date: 20120825
  Serious: Yes (Death)
  Sender: FDA-Public Use
  Company Number: US-PFIZER INC-2011002716

PATIENT
  Age: 52 Year
  Sex: Male

DRUGS (2)
  1. VERAPAMIL HCL [Suspect]
  2. ETHANOL [Suspect]

REACTIONS (1)
  - COMPLETED SUICIDE [None]
